FAERS Safety Report 9030530 (Version 1)
Quarter: 2013Q1

REPORT INFORMATION
  Report Type: Spontaneous
  Country: CA (occurrence: CA)
  Receive Date: 20130122
  Receipt Date: 20130122
  Transmission Date: 20140127
  Serious: Yes (Life-Threatening)
  Sender: FDA-Public Use
  Company Number: CA-PFIZER INC-2012131442

PATIENT
  Age: 61 Year
  Sex: Female
  Weight: 97 kg

DRUGS (14)
  1. MS CONTIN [Suspect]
     Dosage: 210 MG, DAILY
  2. ARTHROTEC [Suspect]
     Indication: MUSCULOSKELETAL PAIN
     Dosage: 75 MG, 2X/DAY
     Route: 048
     Dates: start: 20110729, end: 20120507
  3. ARTHROTEC [Suspect]
     Indication: OSTEOARTHRITIS
  4. ARTHROTEC [Suspect]
     Indication: PRODUCT USED FOR UNKNOWN INDICATION
  5. EFFEXOR XR [Suspect]
     Dosage: 225 MG, DAILY
     Route: 048
  6. LYRICA [Suspect]
     Dosage: 150 MG, 2X/DAY
     Route: 048
  7. TYLENOL W/CODEINE NO. 3 [Suspect]
     Indication: OSTEOARTHRITIS
     Dosage: 4 TABLETS, PRN
     Route: 048
     Dates: start: 20110328, end: 20120402
  8. SEROQUEL [Suspect]
     Indication: DEPRESSION
     Dosage: 75 MG, AT BEDTIME
     Route: 048
  9. BETAMETHASONE [Suspect]
     Indication: PRODUCT USED FOR UNKNOWN INDICATION
     Dosage: 0.1 %, AS NEEDED
  10. ELOCOM [Suspect]
     Indication: PRODUCT USED FOR UNKNOWN INDICATION
     Dosage: UNK
     Route: 065
  11. STATEX [Suspect]
     Indication: PRODUCT USED FOR UNKNOWN INDICATION
     Dosage: 10 MG, 4X/DAY
     Route: 048
  12. BETADERM [Concomitant]
     Dosage: 0.1 %, 2X/DAY AS NEEDED
  13. EFEXOR XR [Concomitant]
     Indication: DEPRESSION
     Dosage: 225 MG, 1X/DAY
     Route: 048
  14. FLONASE [Concomitant]
     Indication: RHINITIS ALLERGIC
     Dosage: 2 SPRAYS 1X/DAY

REACTIONS (2)
  - Hepatitis [Unknown]
  - Drug-induced liver injury [Recovered/Resolved]
